FAERS Safety Report 4580013-X (Version None)
Quarter: 2005Q1

REPORT INFORMATION
  Report Type: 
  Country: None (occurrence: None)
  Receive Date: 20050210
  Receipt Date: 20050128
  Transmission Date: 20050727
  Serious: No
  Sender: FDA-Public Use
  Company Number: MK200502-0015-1

PATIENT
  Age: 50 Year
  Sex: Male

DRUGS (3)
  1. NALTREXONE HCL [Suspect]
     Indication: ABSTAINS FROM ALCOHOL
     Dates: end: 20050119
  2. CAMPRAL [Suspect]
     Indication: ALCOHOLISM
     Dosage: 666 MG, TID, PO
     Route: 048
     Dates: start: 20050119
  3. ALCOHOL [Concomitant]

REACTIONS (3)
  - AMNESIA [None]
  - COMPLEX PARTIAL SEIZURES [None]
  - DRUG SCREEN POSITIVE [None]
